FAERS Safety Report 4343082-8 (Version None)
Quarter: 2004Q2

REPORT INFORMATION
  Report Type: 
  Country: None (occurrence: None)
  Receive Date: 20040419
  Receipt Date: 20040331
  Transmission Date: 20050107
  Serious: No
  Sender: FDA-Public Use
  Company Number: A01200401575

PATIENT
  Sex: Male

DRUGS (1)
  1. XATRAL-(ALFUZOSIN) - TABLET PR-10 MG [Suspect]
     Dosage: ORAL
     Route: 048
     Dates: start: 20040226, end: 20040302

REACTIONS (7)
  - ABDOMINAL ABSCESS [None]
  - ABDOMINAL PAIN LOWER [None]
  - CARCINOMA [None]
  - DIARRHOEA [None]
  - NAUSEA [None]
  - TREATMENT NONCOMPLIANCE [None]
  - VOMITING [None]
